FAERS Safety Report 23735366 (Version 1)
Quarter: 2024Q2

REPORT INFORMATION
  Report Type: Spontaneous
  Country: US (occurrence: US)
  Receive Date: 20240412
  Receipt Date: 20240412
  Transmission Date: 20240715
  Serious: Yes (Hospitalization, Other)
  Sender: FDA-Public Use
  Company Number: CR-AX-2400517

PATIENT
  Sex: Female

DRUGS (2)
  1. CONTRAVE [Suspect]
     Active Substance: BUPROPION HYDROCHLORIDE\NALTREXONE HYDROCHLORIDE
     Indication: Product used for unknown indication
     Dosage: STRENGTH: 8/90 MG, ONE TABLET DAILY
     Route: 065
     Dates: start: 20240330, end: 20240405
  2. CONTRAVE [Suspect]
     Active Substance: BUPROPION HYDROCHLORIDE\NALTREXONE HYDROCHLORIDE
     Dosage: STRENGTH: 8/90 MG, ONE TABLET IN THE MORNING AND ONE TABLET AT NIGHT
     Route: 065
     Dates: start: 20240406, end: 20240406

REACTIONS (11)
  - Muscle spasms [Unknown]
  - Hallucination [Unknown]
  - Heart rate increased [Unknown]
  - Blood pressure increased [Unknown]
  - Insomnia [Unknown]
  - Nausea [Unknown]
  - Hypersensitivity [Unknown]
  - Feeling abnormal [Recovering/Resolving]
  - Dizziness [Unknown]
  - Hyperhidrosis [Unknown]
  - Drug intolerance [Unknown]

NARRATIVE: CASE EVENT DATE: 20240101
